FAERS Safety Report 21511591 (Version 2)
Quarter: 2022Q4

REPORT INFORMATION
  Report Type: Spontaneous
  Country: EG (occurrence: EG)
  Receive Date: 20221027
  Receipt Date: 20221107
  Transmission Date: 20230112
  Serious: No
  Sender: FDA-Public Use
  Company Number: EG-NOVOPROD-971547

PATIENT
  Sex: Male

DRUGS (6)
  1. PLAVIX [Concomitant]
     Active Substance: CLOPIDOGREL BISULFATE
     Indication: Haemophilia
     Dosage: UNK
     Route: 048
     Dates: start: 20200306
  2. VICTOZA [Suspect]
     Active Substance: LIRAGLUTIDE
     Dosage: 1.2(UNIT AND FREQUENCY WERE NOT REPORTED)
     Route: 058
  3. VICTOZA [Suspect]
     Active Substance: LIRAGLUTIDE
     Indication: Obesity
     Dosage: 0.6(UNIT AND FREQUENCY WERE NOT REPORTED)
     Route: 058
     Dates: start: 202005
  4. VICTOZA [Suspect]
     Active Substance: LIRAGLUTIDE
     Dosage: 1.2(UNIT AND FREQUENCY WERE NOT REPORTED)
     Route: 058
     Dates: start: 202107
  5. VICTOZA [Suspect]
     Active Substance: LIRAGLUTIDE
     Dosage: UNK
     Route: 058
     Dates: start: 202207
  6. VICTOZA [Suspect]
     Active Substance: LIRAGLUTIDE
     Dosage: 1.8(UNIT AND FREQUENCY WERE NOT REPORTED)
     Route: 058
     Dates: end: 202012

REACTIONS (3)
  - Thyroid disorder [Recovered/Resolved]
  - COVID-19 [Unknown]
  - Off label use [Unknown]

NARRATIVE: CASE EVENT DATE: 20200101
